FAERS Safety Report 9670041 (Version 1)
Quarter: 2013Q4

REPORT INFORMATION
  Report Type: Spontaneous
  Country: NO (occurrence: NO)
  Receive Date: 20131105
  Receipt Date: 20131105
  Transmission Date: 20140711
  Serious: Yes (Other)
  Sender: FDA-Public Use
  Company Number: NO-ACTAVIS-2013-20201

PATIENT
  Sex: Female

DRUGS (2)
  1. PARACETAMOL (UNKNOWN) [Suspect]
     Indication: MASTOCYTOSIS
     Dosage: UNK
     Route: 065
  2. CHLORHEXIDINE [Concomitant]
     Indication: OFF LABEL USE
     Dosage: UNK
     Route: 065

REACTIONS (1)
  - Anaphylactic reaction [Unknown]
